FAERS Safety Report 9943320 (Version 4)
Quarter: 2014Q2

REPORT INFORMATION
  Report Type: Report from Study
  Country: CA (occurrence: CA)
  Receive Date: 20140303
  Receipt Date: 20140512
  Transmission Date: 20141212
  Serious: Yes (Other)
  Sender: FDA-Public Use
  Company Number: PHHY2014CA003167

PATIENT
  Age: 51 Year
  Sex: Female

DRUGS (10)
  1. GILENYA [Suspect]
     Indication: RELAPSING-REMITTING MULTIPLE SCLEROSIS
     Dosage: 0.5 MG, QD
     Route: 048
     Dates: start: 20131216, end: 20140114
  2. GILENYA [Suspect]
     Dosage: 0.5 MG, QD
     Route: 048
     Dates: start: 20140317
  3. DEXEDRINE [Concomitant]
  4. WELLBUTRIN [Concomitant]
  5. TRAZODONE [Concomitant]
  6. GABAPENTIN [Concomitant]
  7. BACLOFEN [Concomitant]
  8. THYROID [Concomitant]
     Dosage: 60 MG, QD
  9. SERC [Concomitant]
  10. VITAMIN D [Concomitant]

REACTIONS (12)
  - Electrocardiogram PR shortened [Unknown]
  - Diplopia [Unknown]
  - Pain [Unknown]
  - Fatigue [Unknown]
  - Memory impairment [Unknown]
  - Vision blurred [Not Recovered/Not Resolved]
  - Dizziness [Unknown]
  - Blood pressure decreased [Unknown]
  - Ocular discomfort [Not Recovered/Not Resolved]
  - Visual acuity reduced [Unknown]
  - Headache [Not Recovered/Not Resolved]
  - Multiple sclerosis relapse [Unknown]
